FAERS Safety Report 21896065 (Version 1)
Quarter: 2023Q1

REPORT INFORMATION
  Report Type: Spontaneous
  Country: US (occurrence: US)
  Receive Date: 20230123
  Receipt Date: 20230123
  Transmission Date: 20230418
  Serious: Yes (Other)
  Sender: FDA-Public Use
  Company Number: US-GLENMARK PHARMACEUTICALS-2023GMK077814

PATIENT

DRUGS (1)
  1. MUPIROCIN [Suspect]
     Active Substance: MUPIROCIN
     Indication: Nasal congestion
     Dosage: UNK
     Route: 045

REACTIONS (7)
  - Pulmonary oedema [Unknown]
  - Hypersensitivity [Unknown]
  - Intra-abdominal fluid collection [Unknown]
  - Abdominal distension [Unknown]
  - Product use issue [Unknown]
  - Product use in unapproved indication [Unknown]
  - Dyspnoea [Unknown]
